FAERS Safety Report 5228629-1 (Version None)
Quarter: 2007Q1

REPORT INFORMATION
  Report Type: 
  Country: None (occurrence: None)
  Receive Date: 20070131
  Receipt Date: 20070122
  Transmission Date: 20070707
  Serious: Yes (Disabling)
  Sender: FDA-Public Use
  Company Number: GXKR2007GB01058

PATIENT
  Age: 64 Year
  Sex: Male

DRUGS (8)
  1. CITALOPRAM HYDROBROMIDE [Suspect]
     Indication: DEPRESSION
     Dosage: 20 MG, ORAL
     Route: 048
     Dates: start: 20061106, end: 20061219
  2. VESICARE [Suspect]
     Indication: MICTURITION URGENCY
     Dosage: 5 MG, ORAL
     Route: 048
     Dates: start: 20061101, end: 20061219
  3. ALLOPURINOL SODIUM [Concomitant]
  4. ATENOLOL [Concomitant]
  5. BENDROFLUAZIDE [Concomitant]
  6. CITALOPRAM HYDROBROMIDE [Concomitant]
  7. LANSOPRAZOLE [Concomitant]
  8. WARFARIN SODIUM [Concomitant]

REACTIONS (2)
  - PURPURA [None]
  - VASCULITIS [None]
